FAERS Safety Report 8384887-6 (Version None)
Quarter: 2012Q2

REPORT INFORMATION
  Report Type: 
  Country: None (occurrence: None)
  Receive Date: 20120524
  Receipt Date: 20120522
  Transmission Date: 20120825
  Serious: No
  Sender: FDA-Public Use
  Company Number: US-PFIZER INC-2012124025

PATIENT
  Sex: Female

DRUGS (5)
  1. PROPRANOLOL [Concomitant]
     Dosage: 160 MG, UNK
  2. IMIPRAMINE [Concomitant]
     Dosage: 25 MG, UNK
  3. METFORMIN [Concomitant]
     Dosage: 1000 MG, UNK
  4. LIPITOR [Suspect]
     Indication: BLOOD TRIGLYCERIDES INCREASED
     Dosage: 20 MG, 1X/DAY
     Route: 048
     Dates: start: 20111201, end: 20120201
  5. CELEXA [Concomitant]
     Dosage: 10 MG, UNK

REACTIONS (2)
  - MYALGIA [None]
  - PAIN [None]
